FAERS Safety Report 4504784-3 (Version None)
Quarter: 2004Q4

REPORT INFORMATION
  Report Type: 
  Country: None (occurrence: None)
  Receive Date: 20040927
  Receipt Date: 20040811
  Transmission Date: 20050328
  Serious: No
  Sender: FDA-Public Use
  Company Number: USA040875148

PATIENT
  Age: 9 Year
  Sex: Male

DRUGS (1)
  1. STRATTERA [Suspect]
     Dosage: 25 MG DAY

REACTIONS (4)
  - DIZZINESS [None]
  - FEELING ABNORMAL [None]
  - FEELING DRUNK [None]
  - THIRST [None]
